FAERS Safety Report 17094618 (Version 1)
Quarter: 2019Q4

REPORT INFORMATION
  Report Type: Spontaneous
  Country: FR (occurrence: FR)
  Receive Date: 20191130
  Receipt Date: 20191130
  Transmission Date: 20200122
  Serious: Yes (Life-Threatening)
  Sender: FDA-Public Use
  Company Number: FR-ACCORD-162516

PATIENT
  Age: 53 Year
  Sex: Female
  Weight: 54 kg

DRUGS (6)
  1. PACLITAXEL/PACLITAXEL LIPOSOME [Suspect]
     Active Substance: PACLITAXEL
     Indication: BREAST CANCER
     Dosage: NOT KNOWN
     Route: 041
     Dates: start: 2017, end: 201704
  2. TRASTUZUMAB. [Suspect]
     Active Substance: TRASTUZUMAB
     Indication: BREAST CANCER
     Dosage: NOT KNOWN
     Route: 041
     Dates: start: 201703, end: 201803
  3. LETROZOLE. [Suspect]
     Active Substance: LETROZOLE
     Indication: BREAST CANCER
     Dosage: NOT KNOWN
     Route: 048
     Dates: start: 2017
  4. EPIRUBICIN [Suspect]
     Active Substance: EPIRUBICIN
     Indication: BREAST CANCER
     Dosage: NOT KNOWN
     Route: 041
     Dates: start: 201612, end: 201704
  5. FLUOROURACIL. [Suspect]
     Active Substance: FLUOROURACIL
     Indication: BREAST CANCER
     Dosage: NOT KNOWN
     Route: 041
     Dates: start: 201612, end: 201704
  6. CYCLOPHOSPHAMIDE/CYCLOPHOSPHAMIDE MONOHYDRATE [Suspect]
     Active Substance: CYCLOPHOSPHAMIDE
     Indication: BREAST CANCER
     Dosage: NOT KNOWN
     Route: 041
     Dates: start: 201612, end: 201704

REACTIONS (1)
  - Myeloproliferative neoplasm [Unknown]

NARRATIVE: CASE EVENT DATE: 201904
